FAERS Safety Report 7052263-4 (Version None)
Quarter: 2010Q4

REPORT INFORMATION
  Report Type: 
  Country: None (occurrence: None)
  Receive Date: 20101018
  Receipt Date: 20101018
  Transmission Date: 20110411
  Serious: Yes (Hospitalization, Disabling)
  Sender: FDA-Public Use
  Company Number: None

PATIENT
  Sex: Female

DRUGS (2)
  1. PEGASYS [Suspect]
     Indication: HEPATITIS C
     Dosage: 180 MCG WEEKLY SQ
     Route: 058
     Dates: start: 20100603, end: 20100912
  2. RIBAPAK THREE RIVERS PHARMACEUTICALS [Suspect]
     Indication: HEPATITIS C
     Dosage: 400 MG BID PO
     Route: 048
     Dates: start: 20100603, end: 20100912

REACTIONS (1)
  - STEVENS-JOHNSON SYNDROME [None]
